FAERS Safety Report 9175388 (Version 4)
Quarter: 2018Q2

REPORT INFORMATION
  Report Type: Report from Study
  Country: US (occurrence: US)
  Receive Date: 20130320
  Receipt Date: 20180503
  Transmission Date: 20180711
  Serious: Yes (Other)
  Sender: FDA-Public Use
  Company Number: US-ROCHE-1203771

PATIENT

DRUGS (2)
  1. BEVACIZUMAB. [Suspect]
     Active Substance: BEVACIZUMAB
     Indication: MALIGNANT GLIOMA
     Dosage: FOR 12 CYCLES (28 DAYS)
     Route: 042
  2. RILOTUMUMAB [Suspect]
     Active Substance: RILOTUMUMAB
     Indication: MALIGNANT GLIOMA
     Route: 042

REACTIONS (9)
  - Oedema peripheral [Unknown]
  - Pain in extremity [Unknown]
  - Dysphonia [Unknown]
  - Electrocardiogram QT prolonged [Unknown]
  - Embolism venous [Unknown]
  - Fatigue [Unknown]
  - Hypoalbuminaemia [Unknown]
  - Hypokalaemia [Unknown]
  - Hypotension [Unknown]
